FAERS Safety Report 13568470 (Version 2)
Quarter: 2017Q2

REPORT INFORMATION
  Report Type: Spontaneous
  Country: ZA (occurrence: ZA)
  Receive Date: 20170522
  Receipt Date: 20170522
  Transmission Date: 20170830
  Serious: Yes (Death, Life-Threatening, Other)
  Sender: FDA-Public Use
  Company Number: ZA-LHC-2017109

PATIENT
  Age: 28 Year
  Sex: Male

DRUGS (1)
  1. OXYGEN (GENERIC) [Suspect]
     Active Substance: OXYGEN
     Indication: RESPIRATORY FAILURE
     Route: 011
     Dates: start: 2016, end: 2016

REACTIONS (1)
  - Respiratory failure [Unknown]
